FAERS Safety Report 8460878-1 (Version None)
Quarter: 2012Q2

REPORT INFORMATION
  Report Type: 
  Country: None (occurrence: None)
  Receive Date: 20120625
  Receipt Date: 20120613
  Transmission Date: 20120825
  Serious: Yes (Other)
  Sender: FDA-Public Use
  Company Number: BR-AMGEN-BRASP2012017841

PATIENT
  Age: 60 Year
  Sex: Female
  Weight: 81 kg

DRUGS (9)
  1. METHOTREXATE [Concomitant]
     Indication: RHEUMATOID ARTHRITIS
     Dosage: 5 MG, WEEKLY
  2. REMICADE [Suspect]
     Dosage: UNK
  3. AMLODIPINE [Concomitant]
     Indication: HYPERTENSION
     Dosage: UNK
  4. LOSARTAN POTASSIUM [Concomitant]
     Dosage: UNK
  5. ENBREL [Suspect]
     Indication: RHEUMATOID ARTHRITIS
     Dosage: 50 MG, QWK
     Route: 058
     Dates: start: 20111020
  6. ENBREL [Suspect]
     Dosage: 50 MG, QWK
     Route: 058
     Dates: start: 20111001
  7. LEVOTHYROXINE SODIUM [Concomitant]
     Indication: HYPOTHYROIDISM
     Dosage: UNK
     Dates: start: 19920101
  8. PREDNISONE TAB [Concomitant]
     Dosage: UNK
     Dates: start: 19870101
  9. ALPRAZOLAM [Concomitant]
     Indication: RELAXATION THERAPY
     Dosage: UNK

REACTIONS (5)
  - PAIN [None]
  - ALOPECIA [None]
  - URINARY TRACT INFECTION [None]
  - DENGUE FEVER [None]
  - HERPES ZOSTER [None]
